FAERS Safety Report 6104571-9 (Version None)
Quarter: 2009Q1

REPORT INFORMATION
  Report Type: 
  Country: None (occurrence: None)
  Receive Date: 20090302
  Receipt Date: 20090220
  Transmission Date: 20090719
  Serious: Yes (Death)
  Sender: FDA-Public Use
  Company Number: B0561393A

PATIENT

DRUGS (2)
  1. TOPOTECAN HYDROCHLORIDE (FORMULATION UNKNOWN) (GENERIC) (TOPOTECAN) [Suspect]
  2. CYCLOPHOSPHAMIDE [Suspect]
     Dosage: 1 G/M2

REACTIONS (2)
  - DRUG TOXICITY [None]
  - VENOOCCLUSIVE DISEASE [None]
